FAERS Safety Report 7079780-5 (Version None)
Quarter: 2010Q4

REPORT INFORMATION
  Report Type: 
  Country: None (occurrence: None)
  Receive Date: 20101102
  Receipt Date: 20101029
  Transmission Date: 20110411
  Serious: Yes (Other)
  Sender: FDA-Public Use
  Company Number: US-PFIZER INC-2010138390

PATIENT
  Sex: Female
  Weight: 92.971 kg

DRUGS (6)
  1. CHANTIX [Suspect]
     Indication: SMOKING CESSATION THERAPY
     Dosage: 0.5 MG, 1X/DAY
     Route: 048
     Dates: start: 20100927, end: 20100101
  2. CHANTIX [Interacting]
     Dosage: 1 MG, 2X/DAY
     Route: 048
     Dates: start: 20100101
  3. METFORMIN HCL [Interacting]
     Indication: DIABETES MELLITUS
     Dosage: UNK
  4. LISINOPRIL [Interacting]
     Dosage: UNK
  5. COGENTIN [Interacting]
     Indication: ANXIETY
     Dosage: UNK
  6. TRICOR [Interacting]
     Dosage: UNK

REACTIONS (3)
  - BIPOLAR DISORDER [None]
  - DEPRESSION [None]
  - HALLUCINATION [None]
